FAERS Safety Report 9276532 (Version 1)
Quarter: 2013Q2

REPORT INFORMATION
  Report Type: Spontaneous
  Country: GB (occurrence: GB)
  Receive Date: 20130507
  Receipt Date: 20130507
  Transmission Date: 20140414
  Serious: Yes (Hospitalization, Other)
  Sender: FDA-Public Use
  Company Number: GB-TEVA-402850ISR

PATIENT
  Age: 80 Year
  Sex: Male

DRUGS (2)
  1. WARFARIN [Suspect]
  2. NYSTATIN [Interacting]
     Route: 048
     Dates: start: 20130404, end: 20130410

REACTIONS (2)
  - International normalised ratio increased [Unknown]
  - Drug interaction [Recovered/Resolved]
